FAERS Safety Report 7224790-8 (Version None)
Quarter: 2011Q1

REPORT INFORMATION
  Report Type: 
  Country: None (occurrence: None)
  Receive Date: 20110113
  Receipt Date: 20110106
  Transmission Date: 20110831
  Serious: Yes (Death, Hospitalization)
  Sender: FDA-Public Use
  Company Number: US-JNJFOC-20110101837

PATIENT
  Age: 40 Year
  Sex: Male

DRUGS (3)
  1. ACETAMINOPHEN [Suspect]
  2. ACETAMINOPHEN [Suspect]
     Indication: SUICIDE ATTEMPT
  3. DIPHENHYDRAMINE [Suspect]
     Indication: SUICIDE ATTEMPT

REACTIONS (3)
  - HEPATIC NECROSIS [None]
  - RENAL IMPAIRMENT [None]
  - MULTIPLE DRUG OVERDOSE INTENTIONAL [None]
